FAERS Safety Report 9256051 (Version 1)
Quarter: 2013Q2

REPORT INFORMATION
  Report Type: Spontaneous
  Country: US (occurrence: US)
  Receive Date: 20130425
  Receipt Date: 20130425
  Transmission Date: 20140414
  Serious: No
  Sender: FDA-Public Use
  Company Number: US-AMGEN-USASP2012010141

PATIENT
  Sex: Male

DRUGS (4)
  1. NEULASTA [Suspect]
     Indication: CHEMOTHERAPY
     Dosage: UNK
     Dates: start: 201110
  2. 5-FU                               /00098801/ [Concomitant]
     Dosage: UNK
     Dates: start: 201110
  3. AVASTIN /00848101/ [Concomitant]
     Dosage: UNK
     Dates: start: 201110
  4. LEUCOVORIN                         /00566701/ [Concomitant]
     Dosage: UNK
     Dates: start: 201110

REACTIONS (1)
  - White blood cell count increased [Not Recovered/Not Resolved]
